FAERS Safety Report 7934190-0 (Version None)
Quarter: 2011Q4

REPORT INFORMATION
  Report Type: 
  Country: None (occurrence: None)
  Receive Date: 20111122
  Receipt Date: 20111115
  Transmission Date: 20120403
  Serious: Yes (Hospitalization)
  Sender: FDA-Public Use
  Company Number: JP-JNJFOC-20111101792

PATIENT
  Sex: Female

DRUGS (13)
  1. CATABON [Concomitant]
     Indication: HYPOTENSION
     Route: 041
     Dates: start: 20111025, end: 20111001
  2. ALBUMIN (HUMAN) [Concomitant]
     Indication: CIRCULATORY COLLAPSE
     Route: 065
     Dates: start: 20111031, end: 20111101
  3. LEVOFLOXACIN [Concomitant]
     Indication: PRODUCT USED FOR UNKNOWN INDICATION
     Route: 041
  4. SOLU-MEDROL [Concomitant]
     Indication: GRAFT VERSUS HOST DISEASE
     Route: 041
     Dates: start: 20111030
  5. DORIPENEM MONOHYDRATE [Suspect]
     Indication: SEPSIS
     Route: 041
     Dates: start: 20111025, end: 20111101
  6. DORIPENEM MONOHYDRATE [Suspect]
     Indication: PNEUMONIA
     Route: 041
     Dates: start: 20111025, end: 20111101
  7. BISOLVON [Concomitant]
     Indication: PNEUMONIA
     Route: 042
     Dates: start: 20111025
  8. FENTANYL-100 [Concomitant]
     Indication: CANCER PAIN
     Route: 062
     Dates: start: 20110621
  9. RECOMODULIN [Concomitant]
     Indication: DISSEMINATED INTRAVASCULAR COAGULATION
     Route: 041
     Dates: start: 20111030, end: 20111101
  10. GLOVENIN [Concomitant]
     Indication: SEPSIS
     Route: 041
     Dates: start: 20111025, end: 20111027
  11. FLURBIPROFEN [Concomitant]
     Indication: PYREXIA
     Route: 041
     Dates: start: 20111025
  12. INSULIN [Concomitant]
     Indication: DIABETES MELLITUS
     Route: 042
  13. VITAMIN B1 TAB [Concomitant]
     Indication: PROPHYLAXIS
     Route: 065

REACTIONS (1)
  - CONVULSION [None]
